FAERS Safety Report 14455902 (Version 1)
Quarter: 2018Q1

REPORT INFORMATION
  Report Type: Spontaneous
  Country: US (occurrence: US)
  Receive Date: 20180130
  Receipt Date: 20180130
  Transmission Date: 20180509
  Serious: Yes (Hospitalization)
  Sender: FDA-Public Use
  Company Number: US-SUN PHARMACEUTICAL INDUSTRIES LTD-2018US-161458

PATIENT
  Age: 47 Year
  Sex: Female

DRUGS (1)
  1. BACLOFEN. [Suspect]
     Active Substance: BACLOFEN
     Indication: MUSCLE SPASMS
     Dosage: 10 MG, TID
     Route: 048

REACTIONS (6)
  - Overdose [Unknown]
  - Foaming at mouth [Unknown]
  - Unresponsive to stimuli [Unknown]
  - Agitation [Unknown]
  - Drug withdrawal syndrome [Unknown]
  - Delirium [Unknown]
